FAERS Safety Report 22153665 (Version 1)
Quarter: 2023Q1

REPORT INFORMATION
  Report Type: Spontaneous
  Country: US (occurrence: US)
  Receive Date: 20230330
  Receipt Date: 20230330
  Transmission Date: 20230418
  Serious: Yes (Hospitalization, Disabling, Other)
  Sender: FDA-Public Use
  Company Number: US-AMNEAL PHARMACEUTICALS-2022-AMRX-01528

PATIENT
  Sex: Female

DRUGS (2)
  1. TRIAMCINOLONE ACETONIDE [Suspect]
     Active Substance: TRIAMCINOLONE ACETONIDE
     Indication: Steroid therapy
     Dosage: 400MG IN 10ML
     Route: 014
     Dates: start: 20220404, end: 20220404
  2. LIDOCAINE [Suspect]
     Active Substance: LIDOCAINE
     Indication: Steroid therapy
     Dosage: 2 MILLILITER OF 2% SOLUTION
     Route: 014
     Dates: start: 20220404, end: 20220404

REACTIONS (3)
  - Staphylococcal sepsis [Recovered/Resolved with Sequelae]
  - Gait inability [Unknown]
  - Product contamination microbial [Unknown]

NARRATIVE: CASE EVENT DATE: 20220408
